FAERS Safety Report 9978173 (Version 2)
Quarter: 2014Q2

REPORT INFORMATION
  Report Type: Spontaneous
  Country: US (occurrence: US)
  Receive Date: 20140306
  Receipt Date: 20140421
  Transmission Date: 20141212
  Serious: Yes (Other)
  Sender: FDA-Public Use
  Company Number: US-PFIZER INC-2014065074

PATIENT
  Age: 84 Year
  Sex: Male

DRUGS (4)
  1. ZOLOFT [Suspect]
     Dosage: UNK
  2. LEXAPRO [Suspect]
     Dosage: UNK
  3. REQUIP [Suspect]
     Dosage: UNK
  4. CYMBALTA [Suspect]
     Dosage: UNK

REACTIONS (2)
  - Urinary retention [Unknown]
  - Drug hypersensitivity [Unknown]
